FAERS Safety Report 8085651-8 (Version None)
Quarter: 2012Q1

REPORT INFORMATION
  Report Type: 
  Country: None (occurrence: None)
  Receive Date: 20120128
  Receipt Date: 20110405
  Transmission Date: 20120608
  Serious: No
  Sender: FDA-Public Use
  Company Number: US-ABBOTT-11P-163-0716438-00

PATIENT
  Sex: Male
  Weight: 70.37 kg

DRUGS (10)
  1. HUMIRA [Suspect]
     Indication: PRODUCT USED FOR UNKNOWN INDICATION
     Route: 058
     Dates: start: 20081201
  2. XANAX [Concomitant]
     Indication: ANXIETY
  3. XANAX [Concomitant]
     Indication: INSOMNIA
     Dosage: UP TO BID, AT BEDTIME
  4. SYNTHROID [Concomitant]
     Indication: HYPOTHYROIDISM
  5. PRILOSEC [Concomitant]
     Indication: GASTROOESOPHAGEAL REFLUX DISEASE
  6. HYTRIN [Concomitant]
     Indication: PROSTATOMEGALY
  7. FOSAMAX [Concomitant]
     Indication: OSTEOPOROSIS
  8. HYTRIN [Concomitant]
     Indication: DYSURIA
  9. PREDNISONE TAB [Concomitant]
     Indication: CROHN'S DISEASE
     Dosage: ALTERNATE 15MG AND 10MG DAILY
  10. LAMOTIL [Concomitant]
     Indication: CROHN'S DISEASE

REACTIONS (8)
  - FATIGUE [None]
  - DYSPNOEA [None]
  - MUSCULOSKELETAL PAIN [None]
  - HYPOTONIA [None]
  - BACK PAIN [None]
  - PYREXIA [None]
  - WEIGHT FLUCTUATION [None]
  - SINUSITIS [None]
